FAERS Safety Report 7386052-8 (Version None)
Quarter: 2011Q1

REPORT INFORMATION
  Report Type: 
  Country: None (occurrence: None)
  Receive Date: 20110331
  Receipt Date: 20110321
  Transmission Date: 20110831
  Serious: Yes (Other)
  Sender: FDA-Public Use
  Company Number: US-JNJFOC-20110309158

PATIENT
  Sex: Male

DRUGS (1)
  1. TYLENOL W/ CODEINE [Suspect]
     Indication: DRUG EXPOSURE VIA BREAST MILK
     Route: 063

REACTIONS (2)
  - BREAST FEEDING [None]
  - BILIRUBIN URINE [None]
